FAERS Safety Report 9739560 (Version 1)
Quarter: 2013Q4

REPORT INFORMATION
  Report Type: Spontaneous
  Country: US (occurrence: US)
  Receive Date: 20131209
  Receipt Date: 20131209
  Transmission Date: 20140711
  Serious: No
  Sender: FDA-Public Use
  Company Number: US-TEVA-448654USA

PATIENT
  Sex: 0

DRUGS (1)
  1. COPAXONE [Suspect]

REACTIONS (3)
  - Hypersensitivity [Unknown]
  - Rash generalised [Unknown]
  - Pruritus [Unknown]
